FAERS Safety Report 4398248-8 (Version None)
Quarter: 2004Q3

REPORT INFORMATION
  Report Type: 
  Country: None (occurrence: None)
  Receive Date: 20040713
  Receipt Date: 20040630
  Transmission Date: 20050211
  Serious: Yes (Hospitalization)
  Sender: FDA-Public Use
  Company Number: K200400974

PATIENT
  Age: 56 Year
  Sex: Male

DRUGS (10)
  1. ALTACE [Suspect]
     Indication: HYPERTENSION
     Dosage: 10 MG, QD,ORAL
     Route: 048
  2. OFLOXACIN [Suspect]
     Indication: DIABETIC ULCER
     Dosage: ORAL
     Route: 048
     Dates: start: 20040426, end: 20040516
  3. GLUCOPHAGE [Suspect]
     Indication: DIABETES MELLITUS NON-INSULIN-DEPENDENT
     Dosage: 3000 MG, QD,ORAL
     Route: 048
  4. GLUCOR (ACARBOSE) 150MG [Suspect]
     Indication: DIABETES MELLITUS NON-INSULIN-DEPENDENT
     Dosage: 150 MG, QD, ORAL
     Route: 048
  5. PRAVASTATIN SODIUM [Suspect]
     Indication: DYSLIPIDAEMIA
     Dosage: 40 MG, QD, ORAL
     Route: 048
  6. STILNOX (ZOLPIDEM) IU [Suspect]
     Indication: GOUT
     Dosage: 1 UG, QD,ORAL
     Route: 048
  7. ALLOPURINOL [Concomitant]
  8. KARDEGIC (ACETYLSALICYLIC LYSINE) [Concomitant]
  9. TRAMADOL HCL [Concomitant]
  10. TANAKAN (GINKGO BILOBA EXTRACT) [Concomitant]

REACTIONS (3)
  - OSTEITIS [None]
  - STAPHYLOCOCCAL INFECTION [None]
  - VASCULAR PURPURA [None]
